FAERS Safety Report 8163832-2 (Version None)
Quarter: 2012Q1

REPORT INFORMATION
  Report Type: 
  Country: None (occurrence: None)
  Receive Date: 20120224
  Receipt Date: 20120221
  Transmission Date: 20120608
  Serious: Yes (Other)
  Sender: FDA-Public Use
  Company Number: PHHY2011DE107565

PATIENT
  Age: 75 Year
  Sex: Female
  Weight: 68 kg

DRUGS (4)
  1. BETA BLOCKING AGENTS [Concomitant]
     Indication: HYPERTENSION
  2. INSULIN [Concomitant]
     Indication: DIABETES MELLITUS
  3. ACETYLSALICYLIC ACID SRT [Concomitant]
     Indication: COAGULOPATHY
  4. AFINITOR [Suspect]
     Indication: RENAL CELL CARCINOMA
     Dosage: 10 MG, DAILY
     Route: 048
     Dates: start: 20100623, end: 20111011

REACTIONS (3)
  - NEOPLASM PROGRESSION [None]
  - TOOTH DISORDER [None]
  - NEOPLASM MALIGNANT [None]
